FAERS Safety Report 15219432 (Version 1)
Quarter: 2018Q3

REPORT INFORMATION
  Report Type: Spontaneous
  Country: US (occurrence: US)
  Receive Date: 20180731
  Receipt Date: 20180731
  Transmission Date: 20181010
  Serious: Yes (Other)
  Sender: FDA-Public Use
  Company Number: US-LUPIN PHARMACEUTICALS INC.-2017-05587

PATIENT
  Age: 78 Year
  Sex: Male

DRUGS (3)
  1. RANITIDINE. [Concomitant]
     Active Substance: RANITIDINE
     Indication: HAEMORRHAGE PROPHYLAXIS
     Dosage: UNK
     Route: 065
  2. PHENYTOIN. [Concomitant]
     Active Substance: PHENYTOIN
     Indication: PRODUCT USED FOR UNKNOWN INDICATION
     Dosage: UNK
     Route: 065
  3. CIPROFLOXACIN. [Suspect]
     Active Substance: CIPROFLOXACIN
     Indication: PRODUCT USED FOR UNKNOWN INDICATION
     Dosage: 500 MG, BID
     Route: 065

REACTIONS (1)
  - Tubulointerstitial nephritis [Recovering/Resolving]
